APPROVED DRUG PRODUCT: TOPIRAMATE
Active Ingredient: TOPIRAMATE
Strength: 100MG
Dosage Form/Route: TABLET;ORAL
Application: A090353 | Product #003
Applicant: SENORES PHARMACEUTICALS INC
Approved: Sep 1, 2010 | RLD: No | RS: No | Type: DISCN